FAERS Safety Report 18834974 (Version 1)
Quarter: 2021Q1

REPORT INFORMATION
  Report Type: Report from Study
  Country: BR (occurrence: BR)
  Receive Date: 20210203
  Receipt Date: 20210203
  Transmission Date: 20210419
  Serious: Yes (Other)
  Sender: FDA-Public Use
  Company Number: NVSC2021BR020321

PATIENT
  Weight: 3.4 kg

DRUGS (2)
  1. COSENTYX [Suspect]
     Active Substance: SECUKINUMAB
     Indication: FOETAL EXPOSURE DURING PREGNANCY
     Dosage: MATERNAL DOSE: 300 MG, QMO (2 PENS MONTHLY)
     Route: 064
     Dates: start: 20181130
  2. CLONAZEPAM. [Suspect]
     Active Substance: CLONAZEPAM
     Indication: FOETAL EXPOSURE DURING PREGNANCY
     Dosage: MATERNAL DOSE: 2 DF, QD (2 TABLETS DAILY)
     Route: 064

REACTIONS (4)
  - Large for dates baby [Unknown]
  - Premature baby [Unknown]
  - Body height above normal [Unknown]
  - Foetal exposure during pregnancy [Unknown]
